FAERS Safety Report 25920939 (Version 1)
Quarter: 2025Q4

REPORT INFORMATION
  Report Type: Spontaneous
  Country: US (occurrence: US)
  Receive Date: 20251014
  Receipt Date: 20251014
  Transmission Date: 20260117
  Serious: Yes (Hospitalization)
  Sender: PHARMING GROUP
  Company Number: US-PHARMING-PHAUS2025001439

PATIENT

DRUGS (4)
  1. RUCONEST [Suspect]
     Active Substance: CONESTAT ALFA
     Indication: Hereditary angioedema
     Dosage: 2650 IU, PRN
     Route: 042
     Dates: start: 20250918
  2. EPINEPHRINE [Concomitant]
     Active Substance: EPINEPHRINE
     Indication: Product used for unknown indication
  3. HEPARIN [Concomitant]
     Active Substance: HEPARIN SODIUM
     Indication: Product used for unknown indication
  4. AUSTEDO [Concomitant]
     Active Substance: DEUTETRABENAZINE
     Indication: Product used for unknown indication

REACTIONS (1)
  - Device related infection [Unknown]

NARRATIVE: CASE EVENT DATE: 20250101
